FAERS Safety Report 13663370 (Version 1)
Quarter: 2017Q2

REPORT INFORMATION
  Report Type: Spontaneous
  Country: US (occurrence: US)
  Receive Date: 20170619
  Receipt Date: 20170619
  Transmission Date: 20170830
  Serious: Yes (Other)
  Sender: FDA-Public Use
  Company Number: US-SUN PHARMACEUTICAL INDUSTRIES LTD-2017US-143291

PATIENT
  Age: 70 Year
  Sex: Female

DRUGS (1)
  1. LITHIUM. [Suspect]
     Active Substance: LITHIUM
     Indication: PRODUCT USED FOR UNKNOWN INDICATION
     Dosage: STARTED ON LITHIUM 300MG PO BID AND TITRATED UP TO 300MG PO BID AND 450MG PO QHS OVER 7-8 DAYS
     Route: 048

REACTIONS (3)
  - Toxicity to various agents [Unknown]
  - Blood sodium increased [Unknown]
  - Aphasia [Recovered/Resolved]
